FAERS Safety Report 21108829 (Version 1)
Quarter: 2022Q3

REPORT INFORMATION
  Report Type: Spontaneous
  Country: US (occurrence: US)
  Receive Date: 20220721
  Receipt Date: 20220721
  Transmission Date: 20221026
  Serious: No
  Sender: FDA-Public Use
  Company Number: US-BRISTOL-MYERS SQUIBB COMPANY-2022-065354

PATIENT
  Age: 23 Year
  Sex: Female

DRUGS (1)
  1. SPRYCEL [Suspect]
     Active Substance: DASATINIB
     Indication: Chronic myeloid leukaemia
     Route: 048
     Dates: start: 20190914

REACTIONS (7)
  - Nausea [Unknown]
  - Fatigue [Unknown]
  - Feeling abnormal [Unknown]
  - Chapped lips [Unknown]
  - Headache [Unknown]
  - Dizziness [Unknown]
  - Flank pain [Unknown]
